FAERS Safety Report 5462956-8 (Version None)
Quarter: 2007Q3

REPORT INFORMATION
  Report Type: 
  Country: None (occurrence: None)
  Receive Date: 20070920
  Receipt Date: 20070912
  Transmission Date: 20080115
  Serious: Yes (Other)
  Sender: FDA-Public Use
  Company Number: AT-BAYER-200715336GDS

PATIENT
  Age: 41 Year
  Sex: Male

DRUGS (1)
  1. AVELOX [Suspect]
     Indication: VARICELLA
     Dosage: TOTAL DAILY DOSE: 400 MG  UNIT DOSE: 400 MG
     Route: 048
     Dates: start: 20070101, end: 20070101

REACTIONS (2)
  - AGGRESSION [None]
  - HALLUCINATION, VISUAL [None]
